FAERS Safety Report 14446932 (Version 2)
Quarter: 2018Q1

REPORT INFORMATION
  Report Type: Spontaneous
  Country: US (occurrence: US)
  Receive Date: 20180126
  Receipt Date: 20180215
  Transmission Date: 20180509
  Serious: No
  Sender: FDA-Public Use
  Company Number: US-GLAXOSMITHKLINE-US2018013049

PATIENT
  Age: 67 Year
  Sex: Female
  Weight: 61.68 kg

DRUGS (8)
  1. BENLYSTA [Suspect]
     Active Substance: BELIMUMAB
     Indication: SYSTEMIC LUPUS ERYTHEMATOSUS
     Route: 030
  2. PREDNISONE. [Concomitant]
     Active Substance: PREDNISONE
  3. ESTRACE [Concomitant]
     Active Substance: ESTRADIOL
  4. TRAMADOL. [Concomitant]
     Active Substance: TRAMADOL
     Dosage: UNK, PRN
  5. LOPRESSOR [Concomitant]
     Active Substance: METOPROLOL TARTRATE
     Dosage: 25 MG, BID
  6. CALCIUM [Concomitant]
     Active Substance: CALCIUM
  7. PLAQUENIL [Concomitant]
     Active Substance: HYDROXYCHLOROQUINE SULFATE
     Dosage: 200 MG, BID
  8. VITAMIN B12 [Concomitant]
     Active Substance: CYANOCOBALAMIN

REACTIONS (10)
  - Rash [Unknown]
  - Pruritus [Recovered/Resolved]
  - Paraesthesia [Recovered/Resolved]
  - Livedo reticularis [Recovered/Resolved]
  - Skin discomfort [Recovered/Resolved]
  - Incorrect route of drug administration [Unknown]
  - Drug hypersensitivity [Unknown]
  - Underdose [Unknown]
  - Multiple use of single-use product [Unknown]
  - Inappropriate schedule of drug administration [Unknown]

NARRATIVE: CASE EVENT DATE: 20171226
